FAERS Safety Report 19164760 (Version 1)
Quarter: 2021Q2

REPORT INFORMATION
  Report Type: Spontaneous
  Country: US (occurrence: US)
  Receive Date: 20210421
  Receipt Date: 20210421
  Transmission Date: 20210717
  Serious: No
  Sender: FDA-Public Use
  Company Number: US-ALKERMES INC.-ALK-2021-001893

PATIENT
  Age: 42 Year
  Sex: Male

DRUGS (2)
  1. VIVITROL [Suspect]
     Active Substance: NALTREXONE
     Indication: ALCOHOLISM
     Dosage: 380 MILLIGRAM, Q3WK
     Route: 030
     Dates: start: 202104
  2. VIVITROL [Suspect]
     Active Substance: NALTREXONE
     Dosage: 380 MILLIGRAM, QMO
     Route: 030

REACTIONS (7)
  - Injection site reaction [Recovered/Resolved]
  - Alcoholism [Recovering/Resolving]
  - Injection site coldness [Recovered/Resolved]
  - Nervousness [Recovered/Resolved]
  - Injection site pain [Recovered/Resolved]
  - Needle issue [Recovered/Resolved]
  - Discomfort [Recovered/Resolved]

NARRATIVE: CASE EVENT DATE: 202104
